FAERS Safety Report 4816109-4 (Version None)
Quarter: 2005Q4

REPORT INFORMATION
  Report Type: 
  Country: None (occurrence: None)
  Receive Date: 20051026
  Receipt Date: 20051013
  Transmission Date: 20060501
  Serious: Yes (Hospitalization)
  Sender: FDA-Public Use
  Company Number: 2005BI019047

PATIENT
  Age: 50 Year
  Sex: Female
  Weight: 111.5849 kg

DRUGS (1)
  1. AVONEX [Suspect]
     Indication: MULTIPLE SCLEROSIS
     Dosage: 30 UG;QW; IM
     Route: 042
     Dates: start: 19980101, end: 20010801

REACTIONS (7)
  - ARTHRITIS [None]
  - BLOOD GLUCOSE INCREASED [None]
  - DIARRHOEA [None]
  - GAIT DISTURBANCE [None]
  - HYPOAESTHESIA [None]
  - INFLUENZA LIKE ILLNESS [None]
  - MULTIPLE SCLEROSIS [None]
